FAERS Safety Report 25168066 (Version 4)
Quarter: 2025Q3

REPORT INFORMATION
  Report Type: Spontaneous
  Country: JP (occurrence: JP)
  Receive Date: 20250407
  Receipt Date: 20250718
  Transmission Date: 20251021
  Serious: Yes (Death, Life-Threatening, Hospitalization, Other)
  Sender: MERCK SHARP & DOHME LLC
  Company Number: JP-009507513-2269577

PATIENT
  Age: 74 Year
  Sex: Male

DRUGS (4)
  1. KEYTRUDA [Suspect]
     Active Substance: PEMBROLIZUMAB
     Indication: Bladder cancer
     Dosage: FIRST DOSE
     Route: 041
     Dates: start: 20240828, end: 20241016
  2. KEYTRUDA [Suspect]
     Active Substance: PEMBROLIZUMAB
     Indication: Bladder cancer
     Dosage: SECOND DOSE
     Route: 041
     Dates: start: 20240918, end: 20240918
  3. KEYTRUDA [Suspect]
     Active Substance: PEMBROLIZUMAB
     Indication: Bladder cancer
     Route: 041
     Dates: start: 20241016, end: 20241016
  4. PADCEV [Suspect]
     Active Substance: ENFORTUMAB VEDOTIN-EJFV
     Indication: Transitional cell carcinoma
     Route: 042
     Dates: start: 20250106, end: 20250106

REACTIONS (10)
  - Acute hepatic failure [Fatal]
  - Inappropriate schedule of product administration [Unknown]
  - Hepatic necrosis [Not Recovered/Not Resolved]
  - Immune-mediated hepatitis [Fatal]
  - Hepatic haemorrhage [Recovering/Resolving]
  - Influenza [Recovered/Resolved]
  - Hypoglycaemic unconsciousness [Fatal]
  - Interstitial lung disease [Recovering/Resolving]
  - Malignant neoplasm progression [Not Recovered/Not Resolved]
  - Diabetic ketoacidosis [Recovered/Resolved with Sequelae]

NARRATIVE: CASE EVENT DATE: 20241016
